FAERS Safety Report 5342784-4 (Version None)
Quarter: 2007Q2

REPORT INFORMATION
  Report Type: 
  Country: None (occurrence: None)
  Receive Date: 20070601
  Receipt Date: 20070522
  Transmission Date: 20071010
  Serious: Yes (Hospitalization, Other)
  Sender: FDA-Public Use
  Company Number: US-PFIZER INC-2007042090

PATIENT

DRUGS (1)
  1. CYTOTEC [Suspect]
     Indication: LABOUR INDUCTION

REACTIONS (4)
  - BRAIN DAMAGE [None]
  - CONVULSION [None]
  - DRUG EXPOSURE DURING PREGNANCY [None]
  - INJURY ASPHYXIATION [None]
